FAERS Safety Report 9115776 (Version 1)
Quarter: 2013Q1

REPORT INFORMATION
  Report Type: Spontaneous
  Country: HR (occurrence: HR)
  Receive Date: 20130224
  Receipt Date: 20130224
  Transmission Date: 20140127
  Serious: Yes (Other)
  Sender: FDA-Public Use
  Company Number: HR-TEVA-386174ISR

PATIENT
  Age: 71 Year
  Sex: Female
  Weight: 62 kg

DRUGS (6)
  1. INDAPAMIDE [Suspect]
     Indication: HYPERTENSION
     Dosage: 1.5 MILLIGRAM DAILY;
     Route: 048
     Dates: start: 20130122, end: 20130122
  2. PHYSIOTENS [Suspect]
     Indication: HYPERTENSION
     Dosage: .4 MILLIGRAM DAILY;
     Route: 048
     Dates: start: 20130122, end: 20130122
  3. NORPREXANIL [Concomitant]
     Indication: HYPERTENSION
     Dosage: 1 DOSAGE FORMS DAILY; 1 DOSAGE FORM: AMLODIPINE 5MG W/PERIDOPRIL 5MG
     Route: 048
     Dates: start: 20130122
  4. GLUFORMIN [Concomitant]
     Dosage: 1700 MILLIGRAM DAILY;
     Route: 048
     Dates: start: 2009
  5. TRAVATAN [Concomitant]
     Route: 031
  6. ROSIX [Concomitant]
     Dosage: 20 MILLIGRAM DAILY;
     Route: 048
     Dates: start: 20130122

REACTIONS (5)
  - Angioedema [Recovered/Resolved]
  - Dry mouth [Recovered/Resolved]
  - Swollen tongue [Recovered/Resolved]
  - Swelling face [Recovered/Resolved]
  - Choking sensation [Recovered/Resolved]
